FAERS Safety Report 11517097 (Version 2)
Quarter: 2015Q4

REPORT INFORMATION
  Report Type: Spontaneous
  Country: FR (occurrence: FR)
  Receive Date: 20150917
  Receipt Date: 20151111
  Transmission Date: 20160304
  Serious: Yes (Disabling, Other)
  Sender: FDA-Public Use
  Company Number: FR-REGENERON PHARMACEUTICALS, INC.-2015-12389

PATIENT

DRUGS (4)
  1. EYLEA [Suspect]
     Active Substance: AFLIBERCEPT
     Indication: AGE-RELATED MACULAR DEGENERATION
     Dosage: 0.033 UNK, UNK
     Route: 047
     Dates: start: 20141201, end: 20141201
  2. EYLEA [Suspect]
     Active Substance: AFLIBERCEPT
     Dosage: UNK
     Dates: start: 201502, end: 201502
  3. CLIMASTON                          /01498901/ [Concomitant]
     Indication: MENOPAUSE
     Dosage: UNK
     Route: 048
     Dates: start: 2000
  4. EYLEA [Suspect]
     Active Substance: AFLIBERCEPT
     Dosage: UNK
     Dates: start: 201501, end: 201501

REACTIONS (8)
  - Dyspnoea [Recovering/Resolving]
  - Dyspnoea exertional [Recovered/Resolved]
  - Exercise electrocardiogram abnormal [Recovered/Resolved]
  - Chest pain [Recovering/Resolving]
  - Chest discomfort [Recovering/Resolving]
  - Weight decreased [Unknown]
  - Bradycardia [Recovered/Resolved]
  - Dyspnoea exertional [Recovering/Resolving]

NARRATIVE: CASE EVENT DATE: 20150215
